FAERS Safety Report 12811194 (Version 5)
Quarter: 2017Q2

REPORT INFORMATION
  Report Type: Spontaneous
  Country: US (occurrence: US)
  Receive Date: 20161005
  Receipt Date: 20170515
  Transmission Date: 20170830
  Serious: Yes (Hospitalization, Other)
  Sender: FDA-Public Use
  Company Number: US-JNJFOC-20161002384

PATIENT
  Age: 71 Year
  Sex: Female

DRUGS (40)
  1. POLYETHYLENE GLYCOL [Concomitant]
     Active Substance: POLYETHYLENE GLYCOLS
     Route: 065
     Dates: start: 201605
  2. SIMVASTATIN. [Concomitant]
     Active Substance: SIMVASTATIN
     Route: 065
     Dates: start: 20151006
  3. DUREZOL [Concomitant]
     Active Substance: DIFLUPREDNATE
     Route: 065
     Dates: start: 20141126
  4. OFLOXACIN. [Concomitant]
     Active Substance: OFLOXACIN
     Route: 065
     Dates: start: 20141126, end: 20151013
  5. TRETINOIN. [Concomitant]
     Active Substance: TRETINOIN
     Route: 065
     Dates: start: 20140325
  6. DEXTROAMPHETAMINE. [Concomitant]
     Active Substance: DEXTROAMPHETAMINE
     Route: 065
  7. FOLTANX RF [Concomitant]
     Route: 065
     Dates: start: 20151013
  8. ERY-TAB [Concomitant]
     Active Substance: ERYTHROMYCIN
     Route: 065
     Dates: start: 20151012, end: 20151012
  9. CLINDAMYCIN PHOSPHATE. [Concomitant]
     Active Substance: CLINDAMYCIN PHOSPHATE
     Route: 065
     Dates: start: 20140325
  10. XYREM [Suspect]
     Active Substance: SODIUM OXYBATE
     Indication: NARCOLEPSY
     Route: 048
     Dates: start: 201209, end: 2013
  11. HYDROCODONE [Suspect]
     Active Substance: HYDROCODONE
     Indication: PRODUCT USED FOR UNKNOWN INDICATION
     Route: 065
  12. FUROSEMIDE. [Concomitant]
     Active Substance: FUROSEMIDE
     Route: 065
  13. SALINE [Concomitant]
     Active Substance: SODIUM CHLORIDE
     Route: 065
     Dates: start: 20151013
  14. GABAPENTIN. [Concomitant]
     Active Substance: GABAPENTIN
     Route: 065
     Dates: start: 20151006
  15. LEVOTHYROXINE. [Concomitant]
     Active Substance: LEVOTHYROXINE
     Route: 065
     Dates: start: 20151006
  16. ASPIRIN. [Concomitant]
     Active Substance: ASPIRIN
     Route: 065
  17. XYREM [Suspect]
     Active Substance: SODIUM OXYBATE
     Indication: NARCOLEPSY
     Route: 048
     Dates: start: 201002, end: 201003
  18. CRESTOR [Concomitant]
     Active Substance: ROSUVASTATIN CALCIUM
     Route: 065
     Dates: start: 20151013, end: 20151013
  19. SPIRONOLACTONE. [Concomitant]
     Active Substance: SPIRONOLACTONE
     Route: 065
     Dates: start: 20151013
  20. MELOXICAM. [Concomitant]
     Active Substance: MELOXICAM
     Route: 065
     Dates: start: 20151006
  21. REQUIP [Concomitant]
     Active Substance: ROPINIROLE HYDROCHLORIDE
     Route: 065
     Dates: start: 20151006
  22. MINOCYCLINE [Concomitant]
     Active Substance: MINOCYCLINE\MINOCYCLINE HYDROCHLORIDE
     Route: 065
     Dates: start: 20140325
  23. OXYCODONE HYDROCHLORIDE. [Suspect]
     Active Substance: OXYCODONE HYDROCHLORIDE
     Indication: PAIN
     Route: 065
     Dates: start: 201605, end: 201608
  24. CITALOPRAM [Concomitant]
     Active Substance: CITALOPRAM HYDROBROMIDE
     Route: 065
     Dates: start: 201605
  25. ENALAPRIL MALEATE. [Concomitant]
     Active Substance: ENALAPRIL MALEATE
     Route: 065
     Dates: start: 20151006
  26. OMEPRAZOLE. [Concomitant]
     Active Substance: OMEPRAZOLE
     Route: 065
     Dates: start: 20151006
  27. ASPIRIN E.C [Concomitant]
     Active Substance: ASPIRIN
     Route: 065
  28. ASPIRIN E.C [Concomitant]
     Active Substance: ASPIRIN
     Route: 065
     Dates: start: 201605
  29. VITAMIN D3 [Concomitant]
     Active Substance: CHOLECALCIFEROL
     Route: 065
     Dates: start: 20151013
  30. METFORMIN [Concomitant]
     Active Substance: METFORMIN HYDROCHLORIDE
     Route: 065
     Dates: start: 20151012, end: 20151012
  31. FLUTICASONE. [Concomitant]
     Active Substance: FLUTICASONE
     Route: 065
     Dates: end: 201505
  32. TRAMADOL HYDROCHLORIDE. [Suspect]
     Active Substance: TRAMADOL HYDROCHLORIDE
     Indication: PAIN
     Route: 065
     Dates: end: 2016
  33. XYREM [Suspect]
     Active Substance: SODIUM OXYBATE
     Indication: NARCOLEPSY
     Route: 048
     Dates: start: 201003, end: 2012
  34. XYREM [Suspect]
     Active Substance: SODIUM OXYBATE
     Indication: NARCOLEPSY
     Route: 048
     Dates: start: 201312, end: 2016
  35. METHYLIN [Concomitant]
     Active Substance: METHYLPHENIDATE HYDROCHLORIDE
     Route: 065
     Dates: start: 20151012, end: 20151012
  36. VANDAZOLE [Concomitant]
     Active Substance: METRONIDAZOLE
     Route: 065
     Dates: start: 20151012, end: 20151012
  37. ATENOLOL. [Concomitant]
     Active Substance: ATENOLOL
     Route: 065
     Dates: start: 20151006
  38. BUPROPION. [Concomitant]
     Active Substance: BUPROPION
     Route: 065
  39. FEXOFENADINE HCL [Concomitant]
     Active Substance: FEXOFENADINE HYDROCHLORIDE
     Route: 065
  40. FERROUS SULFATE. [Concomitant]
     Active Substance: FERROUS SULFATE
     Route: 065

REACTIONS (16)
  - Joint dislocation [Not Recovered/Not Resolved]
  - Hallucination [Unknown]
  - Constipation [Unknown]
  - Joint injury [Not Recovered/Not Resolved]
  - Condition aggravated [Unknown]
  - Feeling abnormal [Unknown]
  - Flatulence [Unknown]
  - Infection [Unknown]
  - Fall [Recovered/Resolved]
  - Drug ineffective [Unknown]
  - Nausea [Unknown]
  - Shoulder arthroplasty [Unknown]
  - Fall [Recovered/Resolved]
  - Shoulder operation [Unknown]
  - Surgery [Unknown]
  - Depression [Not Recovered/Not Resolved]

NARRATIVE: CASE EVENT DATE: 20150818
